FAERS Safety Report 20639459 (Version 2)
Quarter: 2022Q2

REPORT INFORMATION
  Report Type: Spontaneous
  Country: US (occurrence: US)
  Receive Date: 20220326
  Receipt Date: 20220516
  Transmission Date: 20220720
  Serious: Yes (Hospitalization, Other)
  Sender: FDA-Public Use
  Company Number: US-BRISTOL-MYERS SQUIBB COMPANY-USA-20220304702

PATIENT
  Age: 77 Year
  Sex: Male

DRUGS (1)
  1. REVLIMID [Suspect]
     Active Substance: LENALIDOMIDE
     Indication: Product used for unknown indication
     Dosage: 25 MILLIGRAM
     Route: 048
     Dates: start: 202202

REACTIONS (5)
  - Transient ischaemic attack [Unknown]
  - Diarrhoea [Recovered/Resolved]
  - Cerebrovascular accident [Unknown]
  - Paralysis [Unknown]
  - Speech disorder [Unknown]

NARRATIVE: CASE EVENT DATE: 20220215
